FAERS Safety Report 9739202 (Version 1)
Quarter: 2013Q4

REPORT INFORMATION
  Report Type: Spontaneous
  Country: US (occurrence: US)
  Receive Date: 20131209
  Receipt Date: 20131209
  Transmission Date: 20140711
  Serious: No
  Sender: FDA-Public Use
  Company Number: US-PFIZER INC-2013350586

PATIENT
  Sex: Female

DRUGS (2)
  1. LYRICA [Suspect]
     Indication: ANTIINFLAMMATORY THERAPY
     Dosage: UNK
  2. LYRICA [Suspect]
     Indication: OSTEOARTHRITIS

REACTIONS (2)
  - Off label use [Unknown]
  - Poor quality sleep [Unknown]
